FAERS Safety Report 6576791-0 (Version None)
Quarter: 2010Q1

REPORT INFORMATION
  Report Type: 
  Country: None (occurrence: None)
  Receive Date: 20100210
  Receipt Date: 20100203
  Transmission Date: 20100710
  Serious: Yes (Hospitalization)
  Sender: FDA-Public Use
  Company Number: US-ROCHE-683843

PATIENT
  Sex: Female

DRUGS (1)
  1. XELODA [Suspect]
     Indication: COLORECTAL CANCER
     Dosage: FOR TWO WEEKS
     Route: 048
     Dates: start: 20091105, end: 20100125

REACTIONS (2)
  - ANKLE FRACTURE [None]
  - FALL [None]
